FAERS Safety Report 5042178-5 (Version None)
Quarter: 2006Q2

REPORT INFORMATION
  Report Type: 
  Country: None (occurrence: None)
  Receive Date: 20060619
  Receipt Date: 20060607
  Transmission Date: 20061013
  Serious: Yes (Hospitalization)
  Sender: FDA-Public Use
  Company Number: 200610212

PATIENT
  Age: 43 Year
  Sex: Female
  Weight: 59.4212 kg

DRUGS (2)
  1. CARIMUNE NF (ZLB BEHRING) [Suspect]
     Indication: MYASTHENIA GRAVIS
     Dosage: 6 G ONCE IV
     Route: 042
     Dates: start: 20060606, end: 20060606
  2. PREDNISONE [Concomitant]

REACTIONS (12)
  - AGITATION [None]
  - BODY TEMPERATURE INCREASED [None]
  - CHILLS [None]
  - HEADACHE [None]
  - INFUSION RELATED REACTION [None]
  - LOCALISED INFECTION [None]
  - NO REACTION ON PREVIOUS EXPOSURE TO DRUG [None]
  - RESPIRATORY DISTRESS [None]
  - SKIN NEOPLASM EXCISION [None]
  - SKIN WARM [None]
  - WOUND INFECTION [None]
  - WOUND SECRETION [None]
